FAERS Safety Report 24995407 (Version 2)
Quarter: 2025Q1

REPORT INFORMATION
  Report Type: Spontaneous
  Country: JP (occurrence: JP)
  Receive Date: 20250221
  Receipt Date: 20250311
  Transmission Date: 20250408
  Serious: Yes (Life-Threatening)
  Sender: OTSUKA
  Company Number: JP-MMM-Otsuka-EIVFWH92

PATIENT
  Age: 86 Year
  Sex: Male

DRUGS (1)
  1. REXULTI [Suspect]
     Active Substance: BREXPIPRAZOLE
     Indication: Dementia Alzheimer^s type
     Route: 048

REACTIONS (1)
  - Sedation [Recovering/Resolving]
